FAERS Safety Report 9168148 (Version 2)
Quarter: 2013Q1

REPORT INFORMATION
  Report Type: Spontaneous
  Country: JP (occurrence: None)
  Receive Date: 20130305
  Receipt Date: 20130305
  Transmission Date: 20140127
  Serious: Yes (Other)
  Sender: FDA-Public Use
  Company Number: TCI2013A01142

PATIENT
  Sex: 0

DRUGS (3)
  1. ACTOS [Suspect]
     Dosage: 30 MG (30 MG, 1 D)
     Route: 048
     Dates: start: 200910, end: 20130222
  2. JANUVIA [Concomitant]
  3. OLMETEC [Concomitant]

REACTIONS (1)
  - Blood potassium increased [None]
